FAERS Safety Report 19389956 (Version 1)
Quarter: 2021Q2

REPORT INFORMATION
  Report Type: Spontaneous
  Country: DE (occurrence: DE)
  Receive Date: 20210608
  Receipt Date: 20210608
  Transmission Date: 20210717
  Serious: Yes (Hospitalization)
  Sender: FDA-Public Use
  Company Number: NVSC2021DE123298

PATIENT
  Age: 82 Year
  Sex: Female

DRUGS (5)
  1. TORASEMID [Concomitant]
     Active Substance: TORSEMIDE
     Indication: PRODUCT USED FOR UNKNOWN INDICATION
     Dosage: 10 MG, QD (1?0?0?0)
     Route: 048
  2. APIXABAN [Concomitant]
     Active Substance: APIXABAN
     Indication: PRODUCT USED FOR UNKNOWN INDICATION
     Dosage: 5 MG, BID (1?0?1?0)
     Route: 048
  3. LEVOTHYROXINE SODIUM. [Concomitant]
     Active Substance: LEVOTHYROXINE SODIUM
     Indication: PRODUCT USED FOR UNKNOWN INDICATION
     Dosage: 0.125 MG, QD (1?0?0?0)
     Route: 048
  4. BISOPROLOL [Suspect]
     Active Substance: BISOPROLOL
     Indication: PRODUCT USED FOR UNKNOWN INDICATION
     Dosage: UNK
     Route: 048
  5. AMLODIPIN [Concomitant]
     Active Substance: AMLODIPINE BESYLATE
     Indication: PRODUCT USED FOR UNKNOWN INDICATION
     Dosage: UNK (10|40 MG, 1?0?0?0, TABLETTEN)
     Route: 048

REACTIONS (5)
  - Bradycardia [Recovering/Resolving]
  - Atrial fibrillation [Recovering/Resolving]
  - Dizziness [Recovering/Resolving]
  - Syncope [Recovering/Resolving]
  - Medication error [Unknown]
